FAERS Safety Report 13693573 (Version 2)
Quarter: 2017Q3

REPORT INFORMATION
  Report Type: Spontaneous
  Country: NL (occurrence: NL)
  Receive Date: 20170627
  Receipt Date: 20170728
  Transmission Date: 20171127
  Serious: Yes (Other)
  Sender: FDA-Public Use
  Company Number: NL-PFIZER INC-2017272358

PATIENT
  Age: 66 Year
  Sex: Female
  Weight: 60 kg

DRUGS (2)
  1. FENPROCOUMON [Interacting]
     Active Substance: PHENPROCOUMON
     Dosage: 3 MG, AS SCHEDULED
     Route: 048
  2. SULFASALAZINE. [Suspect]
     Active Substance: SULFASALAZINE
     Indication: RHEUMATIC DISORDER
     Dosage: 500 MG, BUILD OP FROM 1XDAY 1DF TO 2X.DAY 2DF
     Route: 048
     Dates: start: 20170511, end: 20170530

REACTIONS (2)
  - Drug interaction [Recovering/Resolving]
  - International normalised ratio increased [Recovering/Resolving]

NARRATIVE: CASE EVENT DATE: 20170517
